FAERS Safety Report 8802670 (Version 1)
Quarter: 2012Q4

REPORT INFORMATION
  Report Type: 
  Country: US (occurrence: US)
  Receive Date: 20120921
  Receipt Date: 20120921
  Transmission Date: 20130627
  Serious: No
  Sender: FDA-Public Use
  Company Number: US-PFIZER INC-2012231009

PATIENT
  Sex: Female

DRUGS (5)
  1. INLYTA [Suspect]
     Dosage: 5 mg, UNK
     Dates: start: 20120821
  2. ADVIL [Concomitant]
     Indication: ARTHRALGIA
     Dosage: UNK, as needed
  3. ATENOLOL [Concomitant]
  4. VOLTAREN [Concomitant]
     Indication: ARTHRALGIA
     Dosage: UNK, as needed
  5. ALLOPURINOL [Concomitant]

REACTIONS (2)
  - Hypoaesthesia [Unknown]
  - Paraesthesia [Unknown]
